FAERS Safety Report 19088663 (Version 1)
Quarter: 2021Q2

REPORT INFORMATION
  Report Type: Report from Study
  Country: None (occurrence: AU)
  Receive Date: 20210402
  Receipt Date: 20210402
  Transmission Date: 20210717
  Serious: Yes (Other)
  Sender: FDA-Public Use
  Company Number: AU-ABBVIE-21K-008-3836720-00

PATIENT
  Sex: Male
  Weight: 65 kg

DRUGS (4)
  1. DUODOPA [Suspect]
     Active Substance: CARBIDOPA\LEVODOPA
  2. AMANTADINE. [Concomitant]
     Active Substance: AMANTADINE HYDROCHLORIDE
     Indication: PRODUCT USED FOR UNKNOWN INDICATION
     Dosage: 2 TABLETS IN THE MORNING AND 2 TABLETS MIDDAY
     Route: 048
  3. MADOPAR HBS [Concomitant]
     Active Substance: BENSERAZIDE HYDROCHLORIDE\LEVODOPA
     Indication: PRODUCT USED FOR UNKNOWN INDICATION
     Dosage: 1 AT NIGHT
  4. DUODOPA [Suspect]
     Active Substance: CARBIDOPA\LEVODOPA
     Indication: PARKINSON^S DISEASE
     Dosage: MORNING DOSE 10.5ML, CONTINUOUS RATE 3.5ML, EXTRA DOSE 1.5ML WITH 1?HOUR LOCKOUT
     Route: 050
     Dates: start: 20180823

REACTIONS (14)
  - Amnesia [Unknown]
  - Dystonia [Unknown]
  - Muscle spasms [Unknown]
  - Granuloma [Unknown]
  - Dyskinesia [Unknown]
  - Abnormal dreams [Unknown]
  - Dysphonia [Unknown]
  - Middle insomnia [Unknown]
  - Hyperhidrosis [Unknown]
  - Surgery [Unknown]
  - Dysarthria [Unknown]
  - Musculoskeletal stiffness [Unknown]
  - Anxiety [Unknown]
  - Therapeutic response shortened [Unknown]
